FAERS Safety Report 13828971 (Version 1)
Quarter: 2017Q3

REPORT INFORMATION
  Report Type: Spontaneous
  Country: US (occurrence: US)
  Receive Date: 20170803
  Receipt Date: 20170803
  Transmission Date: 20171127
  Serious: Yes (Other)
  Sender: FDA-Public Use
  Company Number: None

PATIENT
  Age: 32 Year
  Sex: Female
  Weight: 55.39 kg

DRUGS (11)
  1. THERMOMETER [Concomitant]
  2. TYLENOL [Concomitant]
     Active Substance: ACETAMINOPHEN
  3. OXIMETER [Concomitant]
  4. BLOOD PRESSURE MACHINE [Concomitant]
  5. BIOTIN [Concomitant]
     Active Substance: BIOTIN
  6. RESTASIS [Suspect]
     Active Substance: CYCLOSPORINE
     Indication: DRY EYE
     Dosage: ?          QUANTITY:180 VIALS;?
     Route: 047
     Dates: start: 20170701
  7. PRILOSEC [Concomitant]
     Active Substance: OMEPRAZOLE MAGNESIUM
  8. VITAMIN D [Concomitant]
     Active Substance: CHOLECALCIFEROL
  9. CYCLOBENZAPRINE. [Concomitant]
     Active Substance: CYCLOBENZAPRINE
  10. VITAMIN C [Concomitant]
     Active Substance: ASCORBIC ACID
  11. ZYRTEC [Concomitant]
     Active Substance: CETIRIZINE HYDROCHLORIDE

REACTIONS (3)
  - Eye pain [None]
  - Ocular discomfort [None]
  - Vision blurred [None]

NARRATIVE: CASE EVENT DATE: 20170728
